FAERS Safety Report 5451875-9 (Version None)
Quarter: 2007Q3

REPORT INFORMATION
  Report Type: 
  Country: None (occurrence: None)
  Receive Date: 20070912
  Receipt Date: 20070831
  Transmission Date: 20080115
  Serious: Yes (Death, Other)
  Sender: FDA-Public Use
  Company Number: 2007JP003072

PATIENT
  Age: 24 Year
  Sex: Female
  Weight: 43 kg

DRUGS (2)
  1. PROGRAF [Suspect]
     Indication: CORD BLOOD TRANSPLANT THERAPY
     Dosage: 1.5 MG,. UID/QD, IV DRIP, 0.7 MG, D, IV DRIP,
     Route: 041
     Dates: end: 20061210
  2. PROGRAF [Suspect]
     Indication: CORD BLOOD TRANSPLANT THERAPY
     Dosage: 1.5 MG,. UID/QD, IV DRIP, 0.7 MG, D, IV DRIP,
     Route: 041
     Dates: start: 20060828

REACTIONS (8)
  - BONE MARROW OEDEMA [None]
  - CONCOMITANT DISEASE AGGRAVATED [None]
  - EMBOLISM [None]
  - LEUKAEMIA [None]
  - PAIN [None]
  - PAIN IN EXTREMITY [None]
  - PULMONARY ARTERY THROMBOSIS [None]
  - PULMONARY HAEMORRHAGE [None]
